FAERS Safety Report 7004897-0 (Version None)
Quarter: 2010Q3

REPORT INFORMATION
  Report Type: 
  Country: None (occurrence: None)
  Receive Date: 20100921
  Receipt Date: 20100913
  Transmission Date: 20110219
  Serious: Yes (Other)
  Sender: FDA-Public Use
  Company Number: US-SANOFI-AVENTIS-2010SA040355

PATIENT
  Age: 53 Year
  Sex: Male

DRUGS (2)
  1. SOLOSTAR [Suspect]
     Indication: TYPE 2 DIABETES MELLITUS
     Dates: start: 20090101
  2. LANTUS [Suspect]
     Indication: TYPE 2 DIABETES MELLITUS
     Dosage: TOOK 90-95 UNITS DAILY.
     Route: 058
     Dates: start: 20090101

REACTIONS (3)
  - BLOOD GLUCOSE DECREASED [None]
  - DEVICE MALFUNCTION [None]
  - OVERDOSE [None]
